FAERS Safety Report 22532631 (Version 1)
Quarter: 2023Q2

REPORT INFORMATION
  Report Type: Spontaneous
  Country: ES (occurrence: ES)
  Receive Date: 20230607
  Receipt Date: 20230607
  Transmission Date: 20230721
  Serious: Yes (Other)
  Sender: FDA-Public Use
  Company Number: None

PATIENT
  Age: 27 Year
  Sex: Male

DRUGS (4)
  1. AZITHROMYCIN [Suspect]
     Active Substance: AZITHROMYCIN
     Indication: Coronavirus infection
     Dosage: 250 MG, QD
     Route: 048
     Dates: start: 20200323, end: 20200326
  2. HYDROXYCHLOROQUINE [Suspect]
     Active Substance: HYDROXYCHLOROQUINE
     Indication: Coronavirus infection
     Dosage: 400 MG, QD
     Route: 048
     Dates: start: 20200322, end: 20200326
  3. ISOTRETINOIN [Concomitant]
     Active Substance: ISOTRETINOIN
     Indication: Acne
     Dosage: 20 MG, QD
     Route: 048
     Dates: start: 20200320
  4. METHOTREXATE [Concomitant]
     Active Substance: METHOTREXATE
     Indication: Still^s disease
     Dosage: 22.5 MG, QW
     Route: 058
     Dates: start: 20170323, end: 20200320

REACTIONS (2)
  - Hepatic cytolysis [Recovered/Resolved]
  - Rash [Recovered/Resolved]

NARRATIVE: CASE EVENT DATE: 20200326
